FAERS Safety Report 16708952 (Version 1)
Quarter: 2019Q3

REPORT INFORMATION
  Report Type: Report from Study
  Country: US (occurrence: US)
  Receive Date: 20190816
  Receipt Date: 20190816
  Transmission Date: 20191004
  Serious: Yes (Other)
  Sender: FDA-Public Use
  Company Number: US-ROCHE-2378380

PATIENT

DRUGS (4)
  1. RITUXIMAB. [Suspect]
     Active Substance: RITUXIMAB
     Indication: PRODUCT USED FOR UNKNOWN INDICATION
     Dosage: WITH ESCALATION BY 50 MG/H INCREMENTS EVERY 30 MIN TO A MAXIMUM OF 400 MG/H.
     Route: 042
  2. DIPHENHYDRAMINE. [Concomitant]
     Active Substance: DIPHENHYDRAMINE
  3. ACETAMINOPHEN. [Concomitant]
     Active Substance: ACETAMINOPHEN
     Route: 048
  4. CETIRIZINE [Concomitant]
     Active Substance: CETIRIZINE HYDROCHLORIDE

REACTIONS (13)
  - Dyspnoea [Unknown]
  - Hypoxia [Unknown]
  - Dizziness [Unknown]
  - Chest pain [Unknown]
  - Swelling face [Unknown]
  - Headache [Unknown]
  - Hypertension [Unknown]
  - Nausea [Unknown]
  - Chills [Unknown]
  - Urticaria [Unknown]
  - Paraesthesia oral [Unknown]
  - Hypotension [Unknown]
  - Rash [Unknown]
